FAERS Safety Report 6951602-X (Version None)
Quarter: 2010Q3

REPORT INFORMATION
  Report Type: 
  Country: None (occurrence: None)
  Receive Date: 20100828
  Receipt Date: 20100330
  Transmission Date: 20110219
  Serious: No
  Sender: FDA-Public Use
  Company Number: US-ABBOTT-10P-163-0636390-00

PATIENT
  Sex: Male
  Weight: 68.1 kg

DRUGS (4)
  1. NIASPAN [Suspect]
     Indication: BLOOD CHOLESTEROL INCREASED
     Dates: start: 20100201
  2. COUMADIN [Concomitant]
     Indication: ATRIAL FIBRILLATION
  3. LANOXIN [Concomitant]
     Indication: ATRIAL FIBRILLATION
  4. QUINAPRIL [Concomitant]
     Indication: HYPERTENSION

REACTIONS (1)
  - OEDEMA PERIPHERAL [None]
